FAERS Safety Report 11206359 (Version 1)
Quarter: 2015Q2

REPORT INFORMATION
  Report Type: Spontaneous
  Country: US (occurrence: None)
  Receive Date: 20150618
  Receipt Date: 20150618
  Transmission Date: 20150821
  Serious: Yes (Disabling)
  Sender: FDA-Public Use
  Company Number: None

PATIENT
  Age: 69 Year
  Sex: Female
  Weight: 83.92 kg

DRUGS (5)
  1. HYDROCHLORATHYAZIDE [Concomitant]
  2. BENICAR [Concomitant]
     Active Substance: OLMESARTAN MEDOXOMIL
  3. METOPROLOL [Concomitant]
     Active Substance: METOPROLOL
  4. LEVOFLOXACIN. [Suspect]
     Active Substance: LEVOFLOXACIN
     Indication: DIVERTICULITIS
     Dosage: 1 PILL ONCE DAILY TAKEN BY MOUTH
     Route: 048
     Dates: start: 20150601, end: 20150603
  5. OMNEPRAZOL [Concomitant]

REACTIONS (2)
  - Musculoskeletal stiffness [None]
  - Tendon pain [None]

NARRATIVE: CASE EVENT DATE: 20150601
